FAERS Safety Report 9436338 (Version 2)
Quarter: 2013Q3

REPORT INFORMATION
  Report Type: Spontaneous
  Country: US (occurrence: US)
  Receive Date: 20130802
  Receipt Date: 20130918
  Transmission Date: 20140515
  Serious: Yes (Other)
  Sender: FDA-Public Use
  Company Number: US-BIOGENIDEC-2013BI069455

PATIENT
  Sex: Male

DRUGS (7)
  1. TECFIDERA [Suspect]
     Indication: MULTIPLE SCLEROSIS
  2. AVONEX [Concomitant]
     Indication: MULTIPLE SCLEROSIS
     Route: 030
     Dates: start: 20121022
  3. AVONEX [Concomitant]
     Indication: MULTIPLE SCLEROSIS
     Route: 030
  4. AMPYRA [Concomitant]
  5. BACLOFEN [Concomitant]
  6. PREDNISONE [Concomitant]
  7. LISINOPRIL [Concomitant]

REACTIONS (6)
  - Fall [Recovered/Resolved]
  - Carotid artery dissection [Not Recovered/Not Resolved]
  - Vascular pseudoaneurysm [Not Recovered/Not Resolved]
  - Head injury [Unknown]
  - Abdominal discomfort [Unknown]
  - Multiple sclerosis [Unknown]
